FAERS Safety Report 18214186 (Version 2)
Quarter: 2020Q3

REPORT INFORMATION
  Report Type: Spontaneous
  Country: JP (occurrence: JP)
  Receive Date: 20200831
  Receipt Date: 20200902
  Transmission Date: 20201103
  Serious: Yes (Hospitalization)
  Sender: FDA-Public Use
  Company Number: JP-ALLERGAN-2032088US

PATIENT
  Sex: Male

DRUGS (2)
  1. SILODOSIN ? BP [Suspect]
     Active Substance: SILODOSIN
     Indication: BENIGN PROSTATIC HYPERPLASIA
     Dosage: UNK
     Route: 048
     Dates: start: 2018
  2. VIMPAT [Concomitant]
     Active Substance: LACOSAMIDE
     Route: 048

REACTIONS (2)
  - Nipple pain [Unknown]
  - Pneumonia [Unknown]
